FAERS Safety Report 5286949-9 (Version None)
Quarter: 2007Q1

REPORT INFORMATION
  Report Type: 
  Country: None (occurrence: None)
  Receive Date: 20070329
  Receipt Date: 20070315
  Transmission Date: 20070707
  Serious: No
  Sender: FDA-Public Use
  Company Number: 2007JP001158

PATIENT
  Age: 4 Year
  Sex: Male
  Weight: 17 kg

DRUGS (2)
  1. PROTOPIC [Suspect]
     Indication: DERMATITIS ATOPIC
     Dosage: 0.03%, TOPICAL
     Route: 061
     Dates: start: 20060210, end: 20060725
  2. TRIAMCINOLONE ACETONIDE [Suspect]
     Dosage: 0.05 G, D, TOPICAL
     Route: 061
     Dates: start: 20060210, end: 20061107

REACTIONS (2)
  - APPLICATION SITE REACTION [None]
  - SKIN PAPILLOMA [None]
